FAERS Safety Report 9138930 (Version 1)
Quarter: 2013Q1

REPORT INFORMATION
  Report Type: Spontaneous
  Country: DE (occurrence: DE)
  Receive Date: 20130305
  Receipt Date: 20130305
  Transmission Date: 20140127
  Serious: Yes (Other)
  Sender: FDA-Public Use
  Company Number: DE-ELI_LILLY_AND_COMPANY-DE201302007903

PATIENT
  Age: 35 Year
  Sex: Male

DRUGS (2)
  1. FLUCTIN [Suspect]
     Indication: DEPRESSION
     Dosage: 20 MG, UNKNOWN
     Route: 048
  2. FLUCTIN [Suspect]
     Dosage: 40 MG, UNKNOWN
     Route: 048

REACTIONS (1)
  - Homicide [Unknown]
